FAERS Safety Report 9154453 (Version 1)
Quarter: 2013Q1

REPORT INFORMATION
  Report Type: Spontaneous
  Country: US (occurrence: None)
  Receive Date: 20130205
  Receipt Date: 20130205
  Transmission Date: 20140127
  Serious: Yes (Other)
  Sender: FDA-Public Use
  Company Number: AUR-APL-2012-02136

PATIENT
  Age: 64 Year
  Sex: Female
  Weight: 65.77 kg

DRUGS (6)
  1. GABAPENTIN [Suspect]
     Indication: NEURALGIA
     Route: 048
     Dates: start: 201203, end: 20120507
  2. BUPROPION (BUPROPION) [Concomitant]
  3. TRAZODONE (TRAZODONE) [Concomitant]
  4. LORAZEPAM (LORAZEPAM) [Concomitant]
  5. OMEPRAZOLE (OMEPRAZOLE) [Concomitant]
  6. PROTONIX (PANTOPRAZOLE) [Concomitant]

REACTIONS (11)
  - Headache [None]
  - Nausea [None]
  - Asthenia [None]
  - Dry mouth [None]
  - Asthenia [None]
  - Weight decreased [None]
  - Drug ineffective [None]
  - Epigastric discomfort [None]
  - Dysphagia [None]
  - Gastric mucosal hypertrophy [None]
  - Gastritis [None]
